FAERS Safety Report 7536290-6 (Version None)
Quarter: 2011Q2

REPORT INFORMATION
  Report Type: 
  Country: None (occurrence: None)
  Receive Date: 20110609
  Receipt Date: 20110606
  Transmission Date: 20111010
  Serious: Yes (Hospitalization)
  Sender: FDA-Public Use
  Company Number: US-SANOFI-AVENTIS-2011SA034878

PATIENT
  Age: 77 Year
  Sex: Female
  Weight: 54.4 kg

DRUGS (5)
  1. MULTAQ [Suspect]
     Indication: ATRIAL FIBRILLATION
     Route: 048
     Dates: start: 20110506, end: 20110516
  2. DIGOXIN [Concomitant]
     Indication: ATRIAL FIBRILLATION
     Route: 065
     Dates: start: 20110504, end: 20110516
  3. ASPIRIN [Concomitant]
     Indication: ATRIAL FIBRILLATION
     Route: 048
     Dates: start: 20110504
  4. AMIODARONE HCL [Concomitant]
     Indication: ATRIAL FIBRILLATION
     Route: 042
     Dates: start: 20110504, end: 20110504
  5. LOPRESSOR [Concomitant]
     Indication: ATRIAL FIBRILLATION
     Route: 065
     Dates: start: 20110504, end: 20110506

REACTIONS (3)
  - BLOOD CREATININE INCREASED [None]
  - OFF LABEL USE [None]
  - RENAL FAILURE ACUTE [None]
